FAERS Safety Report 7829244-3 (Version None)
Quarter: 2011Q4

REPORT INFORMATION
  Report Type: 
  Country: None (occurrence: None)
  Receive Date: 20111020
  Receipt Date: 20111014
  Transmission Date: 20120403
  Serious: Yes (Other)
  Sender: FDA-Public Use
  Company Number: US-ABBOTT-11P-163-0734065-00

PATIENT
  Sex: Male

DRUGS (3)
  1. HYDROCODONE BITARTRATE [Concomitant]
     Indication: PAIN
  2. ANDROGEL [Suspect]
     Indication: PRODUCT USED FOR UNKNOWN INDICATION
  3. TYLENOL-500 [Concomitant]
     Indication: PAIN

REACTIONS (3)
  - PITUITARY TUMOUR BENIGN [None]
  - BLOOD TESTOSTERONE DECREASED [None]
  - ADRENAL ADENOMA [None]
